FAERS Safety Report 8762617 (Version 1)
Quarter: 2012Q4

REPORT INFORMATION
  Report Type: 
  Country: PT (occurrence: PT)
  Receive Date: 20120830
  Receipt Date: 20120830
  Transmission Date: 20130627
  Serious: Yes (Life-Threatening)
  Sender: FDA-Public Use
  Company Number: PT-ROCHE-1001911

PATIENT
  Age: 91 Year
  Sex: Male
  Weight: 70 kg

DRUGS (4)
  1. MABTHERA [Suspect]
     Indication: NON-HODGKIN^S LYMPHOMA
     Dosage: start date: 26/Sep/2011
     Route: 042
     Dates: end: 20110926
  2. METHYLPREDNISOLONE SODIUM SUCCINATE [Concomitant]
     Indication: CHEMOTHERAPY
     Route: 042
     Dates: start: 20110926, end: 20110926
  3. CLEMASTINE FUMARATE [Concomitant]
     Indication: PROPHYLAXIS
     Route: 042
     Dates: start: 20110926, end: 20110926
  4. PARACETAMOL [Concomitant]
     Indication: PROPHYLAXIS
     Route: 042
     Dates: start: 20110926, end: 20110926

REACTIONS (2)
  - Bradycardia [Recovered/Resolved]
  - Tonic clonic movements [Recovered/Resolved]
